FAERS Safety Report 22015746 (Version 1)
Quarter: 2023Q1

REPORT INFORMATION
  Report Type: Report from Study
  Country: US (occurrence: US)
  Receive Date: 20230221
  Receipt Date: 20230221
  Transmission Date: 20230417
  Serious: Yes (Death, Hospitalization)
  Sender: FDA-Public Use
  Company Number: US-MYLANLABS-2023M1018954

PATIENT
  Age: 51 Year
  Sex: Female

DRUGS (9)
  1. ACETAMINOPHEN [Suspect]
     Active Substance: ACETAMINOPHEN
     Indication: Product used for unknown indication
     Dosage: UNK
     Route: 065
  2. FOMEPIZOLE [Suspect]
     Active Substance: FOMEPIZOLE
     Indication: Toxicity to various agents
     Dosage: UNK
     Route: 065
  3. THIAMINE [Suspect]
     Active Substance: THIAMINE
     Indication: Toxicity to various agents
     Dosage: UNK
     Route: 065
  4. EPINEPHRINE [Suspect]
     Active Substance: EPINEPHRINE
     Indication: Toxicity to various agents
     Dosage: UNK
     Route: 065
  5. BENZONATATE [Suspect]
     Active Substance: BENZONATATE
     Indication: Product used for unknown indication
     Dosage: UNK
     Route: 065
  6. CALCIUM [Suspect]
     Active Substance: CALCIUM
     Indication: Toxicity to various agents
     Dosage: UNK
     Route: 065
  7. ACETYLCYSTEINE [Suspect]
     Active Substance: ACETYLCYSTEINE
     Indication: Toxicity to various agents
     Dosage: UNK
     Route: 065
  8. SODIUM BICARBONATE [Suspect]
     Active Substance: SODIUM BICARBONATE
     Indication: Toxicity to various agents
     Dosage: UNK
     Route: 065
  9. VITAMIN K [Suspect]
     Active Substance: PHYTONADIONE
     Indication: Toxicity to various agents
     Dosage: UNK
     Route: 065

REACTIONS (11)
  - Toxicity to various agents [Fatal]
  - Drug ineffective [Fatal]
  - Hypotension [Fatal]
  - Tachycardia [Fatal]
  - Respiratory depression [Fatal]
  - Coma [Fatal]
  - Hypoglycaemia [Fatal]
  - Metabolic acidosis [Fatal]
  - Anion gap [Fatal]
  - Hepatotoxicity [Fatal]
  - Off label use [Unknown]
